FAERS Safety Report 23700962 (Version 2)
Quarter: 2025Q1

REPORT INFORMATION
  Report Type: Spontaneous
  Country: CA (occurrence: CA)
  Receive Date: 20240403
  Receipt Date: 20250313
  Transmission Date: 20250409
  Serious: Yes (Other)
  Sender: SANDOZ
  Company Number: CA-SANDOZ-SDZ2024CA035009

PATIENT
  Age: 71 Year
  Sex: Female

DRUGS (15)
  1. AMOXICILLIN\CLAVULANIC ACID [Suspect]
     Active Substance: AMOXICILLIN\CLAVULANIC ACID
     Indication: Pneumonia
     Route: 065
  2. CEFADROXIL [Suspect]
     Active Substance: CEFADROXIL
     Indication: Cellulitis
     Route: 065
  3. LEVOFLOXACIN [Suspect]
     Active Substance: LEVOFLOXACIN
     Indication: Bronchitis
     Route: 065
  4. LEVOFLOXACIN [Suspect]
     Active Substance: LEVOFLOXACIN
     Indication: Pneumonia
     Route: 065
  5. MOXIFLOXACIN [Suspect]
     Active Substance: MOXIFLOXACIN
     Indication: Pneumonia
     Route: 065
  6. DURVALUMAB [Concomitant]
     Active Substance: DURVALUMAB
     Indication: Metastases to lymph nodes
     Route: 065
  7. DURVALUMAB [Concomitant]
     Active Substance: DURVALUMAB
     Indication: Malignant melanoma
     Route: 065
  8. IPILIMUMAB [Concomitant]
     Active Substance: IPILIMUMAB
     Indication: Metastases to lymph nodes
     Route: 065
  9. IPILIMUMAB [Concomitant]
     Active Substance: IPILIMUMAB
     Indication: Disease progression
  10. IPILIMUMAB [Concomitant]
     Active Substance: IPILIMUMAB
     Indication: Malignant melanoma
  11. NIVOLUMAB [Concomitant]
     Active Substance: NIVOLUMAB
     Indication: Metastases to lymph nodes
     Route: 065
  12. NIVOLUMAB [Concomitant]
     Active Substance: NIVOLUMAB
     Indication: Disease progression
  13. NIVOLUMAB [Concomitant]
     Active Substance: NIVOLUMAB
     Indication: Malignant melanoma
  14. TRAMETINIB [Concomitant]
     Active Substance: TRAMETINIB
     Indication: Metastases to lymph nodes
     Route: 065
  15. TRAMETINIB [Concomitant]
     Active Substance: TRAMETINIB
     Indication: Malignant melanoma
     Route: 065

REACTIONS (4)
  - Gastrointestinal disorder [Recovering/Resolving]
  - Metastatic malignant melanoma [Recovering/Resolving]
  - Neoplasm progression [Recovering/Resolving]
  - Dysbiosis [Recovering/Resolving]
